FAERS Safety Report 18716953 (Version 1)
Quarter: 2021Q1

REPORT INFORMATION
  Report Type: Spontaneous
  Country: FR (occurrence: FR)
  Receive Date: 20210108
  Receipt Date: 20210108
  Transmission Date: 20210419
  Serious: Yes (Hospitalization)
  Sender: FDA-Public Use
  Company Number: FR-ASTRAZENECA-2021A000839

PATIENT
  Age: 29 Year
  Sex: Female
  Weight: 85 kg

DRUGS (3)
  1. OMEPRAZOLE. [Suspect]
     Active Substance: OMEPRAZOLE
     Indication: GASTROOESOPHAGEAL REFLUX DISEASE
     Dosage: IF NEEDED
     Route: 048
  2. KETUM [Suspect]
     Active Substance: KETOPROFEN
     Indication: PAIN
     Dosage: IF NEEDED
     Route: 048
  3. SYMBICORT [Suspect]
     Active Substance: BUDESONIDE\FORMOTEROL FUMARATE DIHYDRATE
     Indication: ASTHMA
     Dosage: 400/12UG/DOSE IF NEEDED AS REQUIRED
     Route: 055
     Dates: start: 2010

REACTIONS (2)
  - Mixed anxiety and depressive disorder [Recovering/Resolving]
  - Depression [Recovering/Resolving]

NARRATIVE: CASE EVENT DATE: 20200930
